FAERS Safety Report 6803508-4 (Version None)
Quarter: 2010Q2

REPORT INFORMATION
  Report Type: 
  Country: None (occurrence: None)
  Receive Date: 20100628
  Receipt Date: 20100617
  Transmission Date: 20101027
  Serious: Yes (Hospitalization)
  Sender: FDA-Public Use
  Company Number: BE-JNJFOC-20100603582

PATIENT
  Sex: Female
  Weight: 56 kg

DRUGS (4)
  1. REMICADE [Suspect]
     Indication: COLITIS ULCERATIVE
     Route: 042
  2. REMICADE [Suspect]
     Route: 042
  3. LEDERTREXATE SODIUM [Concomitant]
     Indication: SPONDYLOARTHROPATHY
     Route: 030
  4. BUDENOFALK [Concomitant]
     Indication: PROCTITIS
     Route: 054

REACTIONS (4)
  - HEADACHE [None]
  - INFUSION RELATED REACTION [None]
  - MEDICAL OBSERVATION [None]
  - MYALGIA [None]
